FAERS Safety Report 9924787 (Version 1)
Quarter: 2014Q1

REPORT INFORMATION
  Report Type: Spontaneous
  Country: JP (occurrence: JP)
  Receive Date: 20140226
  Receipt Date: 20140226
  Transmission Date: 20141002
  Serious: Yes (Hospitalization)
  Sender: FDA-Public Use
  Company Number: JP-MYLANLABS-2014S1003475

PATIENT
  Age: 38 Year
  Sex: Female

DRUGS (1)
  1. AMSULMYLAN [Suspect]
     Indication: DIVERTICULITIS
     Route: 041
     Dates: start: 20140104, end: 20140108

REACTIONS (1)
  - Drug eruption [Recovered/Resolved]
